FAERS Safety Report 20336449 (Version 4)
Quarter: 2023Q2

REPORT INFORMATION
  Report Type: Spontaneous
  Country: US (occurrence: US)
  Receive Date: 20220114
  Receipt Date: 20230626
  Transmission Date: 20230722
  Serious: No
  Sender: FDA-Public Use
  Company Number: US-PFIZER INC-202101393898

PATIENT
  Age: 75 Year
  Sex: Female

DRUGS (2)
  1. IBRANCE [Suspect]
     Active Substance: PALBOCICLIB
     Dosage: 100 MG
  2. IBRANCE [Suspect]
     Active Substance: PALBOCICLIB
     Dosage: 75 MG, CYCLIC TAKE 1 TAB BY MOUTH DAILY,TO BE TAKEN FOR 21 CONSECUTIVE DAYS,FOLLOWED BY 14 DAYS OFF
     Route: 048

REACTIONS (4)
  - White blood cell count decreased [Unknown]
  - Full blood count decreased [Unknown]
  - Neutrophil count abnormal [Unknown]
  - Off label use [Unknown]
